FAERS Safety Report 17824956 (Version 1)
Quarter: 2020Q2

REPORT INFORMATION
  Report Type: Spontaneous
  Country: US (occurrence: US)
  Receive Date: 20200526
  Receipt Date: 20200526
  Transmission Date: 20200714
  Serious: Yes (Other)
  Sender: FDA-Public Use
  Company Number: None

PATIENT
  Age: 72 Year
  Sex: Male
  Weight: 71 kg

DRUGS (12)
  1. ASCORBIC ACID PO [Concomitant]
     Dates: start: 20200518, end: 20200523
  2. CEFTRIAXONE IV [Concomitant]
     Dates: start: 20200518, end: 20200523
  3. FUROSEMIDE IVP AND GTT [Concomitant]
     Dates: start: 20200520, end: 20200523
  4. CISATRICURIUM [Concomitant]
     Dates: start: 20200518, end: 20200523
  5. PROPOFOL. [Concomitant]
     Active Substance: PROPOFOL
     Dates: start: 20200518, end: 20200524
  6. AZITHROMYCIN IV [Concomitant]
     Dates: start: 20200518, end: 20200523
  7. CHOLECALCIFEROL [Concomitant]
     Active Substance: CHOLECALCIFEROL
     Dates: start: 20200521, end: 20200523
  8. REMDESIVIR. [Suspect]
     Active Substance: REMDESIVIR
     Indication: COVID-19
     Route: 041
     Dates: start: 20200518, end: 20200522
  9. FENTANYL INFUSION VENT SEDATION [Concomitant]
     Dates: start: 20200518, end: 20200524
  10. CIMETIDINE PO [Concomitant]
     Dates: start: 20200520, end: 20200523
  11. EPOPROSTENOL INHALED [Concomitant]
     Dates: start: 20200518, end: 20200523
  12. ZINC GLUCONATE PO [Concomitant]
     Dates: start: 20200518, end: 20200523

REACTIONS (6)
  - Incorrect dose administered by product [None]
  - Glomerular filtration rate decreased [None]
  - Dose calculation error [None]
  - Blood creatinine increased [None]
  - Acute kidney injury [None]
  - Sepsis [None]

NARRATIVE: CASE EVENT DATE: 20200522
